FAERS Safety Report 4285463-7 (Version None)
Quarter: 2004Q1

REPORT INFORMATION
  Report Type: 
  Country: None (occurrence: None)
  Receive Date: 20040202
  Receipt Date: 20040120
  Transmission Date: 20041129
  Serious: Yes (Hospitalization)
  Sender: FDA-Public Use
  Company Number: US-JNJFOC-20040104108

PATIENT
  Age: 67 Year
  Sex: Female
  Weight: 63.05 kg

DRUGS (10)
  1. REMICADE [Suspect]
     Indication: RHEUMATOID ARTHRITIS
     Dosage: 200 MG, INTRAVENOUS
     Route: 042
     Dates: start: 20031016
  2. PREDNISONE [Concomitant]
  3. METHOTREXATE SODIUM [Concomitant]
  4. DN 100 (PROPACET) [Concomitant]
  5. DOXEPIN HCL [Concomitant]
  6. MIACALCIN [Concomitant]
  7. VIVELLE (ESTRADIOL) PATCH [Concomitant]
  8. COREG [Concomitant]
  9. ACIPHEX [Concomitant]
  10. LEXAPRO (ALL OTHER THERAPEUTIC PRODUCTS) [Concomitant]

REACTIONS (2)
  - BRAIN NEOPLASM MALIGNANT [None]
  - LUNG NEOPLASM MALIGNANT [None]
